FAERS Safety Report 8845128 (Version 1)
Quarter: 2012Q4

REPORT INFORMATION
  Report Type: 
  Country: CN (occurrence: CN)
  Receive Date: 20121017
  Receipt Date: 20121017
  Transmission Date: 20130627
  Serious: Yes (Other)
  Sender: FDA-Public Use
  Company Number: CN-PFIZER INC-2012253841

PATIENT
  Age: 27 Year
  Sex: Male
  Weight: 80 kg

DRUGS (4)
  1. EFEXOR [Suspect]
     Indication: DEPRESSION
     Dosage: 75 mg, daily
     Route: 048
  2. EFEXOR [Suspect]
     Dosage: 225 mg, 1x/day
     Route: 048
     Dates: start: 20101022, end: 20101119
  3. VALPROATE SODIUM [Concomitant]
     Indication: DEPRESSION
     Dosage: 500 mg, daily
     Route: 048
     Dates: start: 20101022
  4. QUETIAPINE FUMARATE [Concomitant]
     Indication: DEPRESSION
     Dosage: 200mg, daily
     Route: 048
     Dates: start: 20101022

REACTIONS (3)
  - Mental disorder [Recovering/Resolving]
  - Anger [Recovering/Resolving]
  - Impatience [Recovering/Resolving]
